FAERS Safety Report 25503405 (Version 2)
Quarter: 2025Q3

REPORT INFORMATION
  Report Type: Spontaneous
  Country: US (occurrence: US)
  Receive Date: 20250702
  Receipt Date: 20250717
  Transmission Date: 20251021
  Serious: Yes (Other)
  Sender: TEVA
  Company Number: US-TEVA-VS-3345304

PATIENT
  Age: 50 Year
  Sex: Female

DRUGS (4)
  1. WARFARIN [Interacting]
     Active Substance: WARFARIN
     Indication: Cardiac ventricular thrombosis
     Route: 065
  2. SODIUM CHLORIDE [Interacting]
     Active Substance: SODIUM CHLORIDE
     Indication: Plasmapheresis
     Route: 065
  3. ALBUMIN HUMAN [Interacting]
     Active Substance: ALBUMIN HUMAN
     Indication: Plasmapheresis
     Route: 065
  4. ARGATROBAN [Interacting]
     Active Substance: ARGATROBAN
     Indication: Cardiac ventricular thrombosis
     Route: 065

REACTIONS (2)
  - Activated partial thromboplastin time prolonged [Unknown]
  - Drug interaction [Unknown]
